FAERS Safety Report 24448797 (Version 2)
Quarter: 2024Q4

REPORT INFORMATION
  Report Type: Spontaneous
  Country: JP (occurrence: JP)
  Receive Date: 20241017
  Receipt Date: 20241028
  Transmission Date: 20250115
  Serious: Yes (Hospitalization, Other)
  Sender: TWI PHARMACEUTICALS
  Company Number: JP-TWI PHARMACEUTICAL, INC-20241000170

PATIENT
  Age: 76 Year
  Sex: Female
  Weight: 39.2 kg

DRUGS (1)
  1. DONEPEZIL HYDROCHLORIDE [Suspect]
     Active Substance: DONEPEZIL HYDROCHLORIDE
     Indication: Product used for unknown indication
     Dosage: 3 MG, / DAY
     Route: 048

REACTIONS (7)
  - Dropped head syndrome [Recovered/Resolved]
  - Muscle hypertrophy [Recovered/Resolved]
  - Cerebral atrophy [Unknown]
  - Muscle rigidity [Unknown]
  - Postural reflex impairment [Unknown]
  - Parkinsonian gait [Unknown]
  - Movement disorder [Unknown]
